FAERS Safety Report 4691461-1 (Version None)
Quarter: 2005Q2

REPORT INFORMATION
  Report Type: 
  Country: None (occurrence: None)
  Receive Date: 20050613
  Receipt Date: 20050308
  Transmission Date: 20051028
  Serious: Yes (Hospitalization)
  Sender: FDA-Public Use
  Company Number: S05-USA-00304-01

PATIENT
  Age: 22 Year
  Sex: Male

DRUGS (2)
  1. LEXAPRO [Suspect]
     Indication: DEPRESSION
     Dates: end: 20050117
  2. WELLBUTRIN [Suspect]
     Indication: DEPRESSION
     Dates: end: 20050117

REACTIONS (1)
  - PANCREATITIS ACUTE [None]
